FAERS Safety Report 19752790 (Version 1)
Quarter: 2021Q3

REPORT INFORMATION
  Report Type: Spontaneous
  Country: FR (occurrence: FR)
  Receive Date: 20210827
  Receipt Date: 20210827
  Transmission Date: 20211014
  Serious: Yes (Death)
  Sender: FDA-Public Use
  Company Number: FR-SUN PHARMACEUTICAL INDUSTRIES LTD-2021RR-309377

PATIENT
  Age: 44 Year
  Sex: Male

DRUGS (7)
  1. REVLIMID [Suspect]
     Active Substance: LENALIDOMIDE
     Indication: PLASMA CELL MYELOMA
     Dosage: UNK
     Route: 048
     Dates: start: 20210625, end: 20210715
  2. ASPIRINE PROTECT 100 MG, COMPRIME GASTRO?REISTANT [Concomitant]
     Indication: PRODUCT USED FOR UNKNOWN INDICATION
     Dosage: 1CP/J ()
     Route: 048
     Dates: start: 20210614
  3. VALACYCLOVIR [Suspect]
     Active Substance: VALACYCLOVIR HYDROCHLORIDE
     Indication: PLASMA CELL MYELOMA
     Dosage: 500MG/J ()
     Route: 048
     Dates: start: 20210614
  4. BACTRIM [Suspect]
     Active Substance: SULFAMETHOXAZOLE\TRIMETHOPRIM
     Indication: PLASMA CELL MYELOMA
     Dosage: 1CP/J ()
     Route: 048
     Dates: start: 20210614
  5. AUGMENTIN [Suspect]
     Active Substance: AMOXICILLIN\CLAVULANATE POTASSIUM
     Indication: TOOTH INFECTION
     Dosage: 1G/J ()
     Route: 048
     Dates: start: 20210712, end: 20210714
  6. VELCADE [Suspect]
     Active Substance: BORTEZOMIB
     Indication: PLASMA CELL MYELOMA
     Dosage: UNK
     Route: 058
     Dates: start: 20210625, end: 20210709
  7. DEXAMETHASONE (ACETATE DE) [Concomitant]
     Indication: PLASMA CELL MYELOMA
     Dosage: 40MG LES 25/06, 02/07, 09/07, 16/07 ()
     Route: 048

REACTIONS (1)
  - Drug reaction with eosinophilia and systemic symptoms [Fatal]

NARRATIVE: CASE EVENT DATE: 20210713
